FAERS Safety Report 24369205 (Version 2)
Quarter: 2024Q4

REPORT INFORMATION
  Report Type: Spontaneous
  Country: US (occurrence: US)
  Receive Date: 20240927
  Receipt Date: 20241023
  Transmission Date: 20250115
  Serious: No
  Sender: SANOFI AVENTIS
  Company Number: US-SA-2024SA273423

PATIENT
  Age: 25 Year
  Sex: Male

DRUGS (1)
  1. DUPIXENT [Suspect]
     Active Substance: DUPILUMAB
     Indication: Dermatitis allergic
     Dosage: 300 MG, QOW
     Route: 058
     Dates: start: 2024, end: 202408

REACTIONS (3)
  - Sleep disorder due to a general medical condition [Unknown]
  - Rash [Unknown]
  - Eczema [Unknown]

NARRATIVE: CASE EVENT DATE: 20240101
